FAERS Safety Report 8563535-6 (Version None)
Quarter: 2012Q3

REPORT INFORMATION
  Report Type: 
  Country: None (occurrence: None)
  Receive Date: 20120802
  Receipt Date: 20120723
  Transmission Date: 20120928
  Serious: Yes (Other)
  Sender: FDA-Public Use
  Company Number: US-BRISTOL-MYERS SQUIBB COMPANY-16792780

PATIENT
  Age: 65 Year
  Sex: Male

DRUGS (3)
  1. CARBOPLATIN [Suspect]
     Indication: LUNG CANCER METASTATIC
  2. ETOPOSIDE [Suspect]
     Indication: LUNG CANCER METASTATIC
  3. TAXOL [Suspect]
     Indication: LUNG CANCER METASTATIC

REACTIONS (2)
  - NEOPLASM MALIGNANT [None]
  - CONVULSION [None]
